FAERS Safety Report 24026845 (Version 4)
Quarter: 2024Q3

REPORT INFORMATION
  Report Type: Report from Study
  Country: VN (occurrence: VN)
  Receive Date: 20240628
  Receipt Date: 20240710
  Transmission Date: 20241017
  Serious: No
  Sender: ROCHE
  Company Number: VN-ROCHE-3564911

PATIENT
  Age: 42 Year
  Sex: Female

DRUGS (9)
  1. ALECTINIB [Suspect]
     Active Substance: ALECTINIB
     Indication: Lung cancer metastatic
     Route: 048
     Dates: start: 20230427
  2. ALECTINIB [Suspect]
     Active Substance: ALECTINIB
     Route: 048
     Dates: start: 20221222
  3. RAMLEPSA [Concomitant]
     Indication: Analgesic therapy
     Route: 048
     Dates: start: 20230724, end: 20231213
  4. SUN-CLOSEN [Concomitant]
     Route: 042
     Dates: start: 20231113, end: 20231113
  5. TEBANTIN [Concomitant]
     Route: 048
     Dates: start: 20231113, end: 20231210
  6. LEDROBON [Concomitant]
     Route: 042
     Dates: start: 20231207, end: 20231207
  7. ZOLEDRONIC [Concomitant]
     Active Substance: ZOLEDRONIC ACID
     Route: 042
     Dates: start: 20231213, end: 20231213
  8. ZOLEDRONIC [Concomitant]
     Active Substance: ZOLEDRONIC ACID
     Route: 042
     Dates: start: 20240108, end: 20240108
  9. ACETAMINOPHEN\TRAMADOL HYDROCHLORIDE [Concomitant]
     Active Substance: ACETAMINOPHEN\TRAMADOL HYDROCHLORIDE
     Dosage: 1 CAPSULE
     Route: 048
     Dates: start: 20240108, end: 20240108

REACTIONS (1)
  - Pelvic pain [Recovered/Resolved]

NARRATIVE: CASE EVENT DATE: 20231213
